FAERS Safety Report 10507233 (Version 1)
Quarter: 2014Q4

REPORT INFORMATION
  Report Type: Spontaneous
  Country: US (occurrence: US)
  Receive Date: 20141009
  Receipt Date: 20141009
  Transmission Date: 20150528
  Serious: Yes (Other)
  Sender: FDA-Public Use
  Company Number: US-SUN PHARMACEUTICAL INDUSTRIES LTD-2014SUN02243

PATIENT
  Age: 8 Year
  Sex: Male
  Weight: 28 kg

DRUGS (6)
  1. METHYLPHENIDATE HYDROCHLORIDE 5 MG TABLET [Interacting]
     Active Substance: METHYLPHENIDATE HYDROCHLORIDE
     Dosage: 15 MG, TID, RESUMED AFTER DISAPPEARANCE OF HALLUCINATION
     Route: 065
  2. METHYLPHENIDATE HYDROCHLORIDE 54 MG [Suspect]
     Active Substance: METHYLPHENIDATE HYDROCHLORIDE
     Indication: ATTENTION DEFICIT/HYPERACTIVITY DISORDER
     Dosage: 5 MG, BID
     Route: 065
  3. METHYLPHENIDATE HYDROCHLORIDE 5 MG TABLET [Interacting]
     Active Substance: METHYLPHENIDATE HYDROCHLORIDE
     Dosage: AFTER 3 WEEKS 10 MG TWICE A DAY
     Route: 065
  4. FLUOXETINE [Interacting]
     Active Substance: FLUOXETINE\FLUOXETINE HYDROCHLORIDE
     Indication: DEPRESSION
     Dosage: 4 MG,DAILY
     Route: 065
  5. METHYLPHENIDATE HYDROCHLORIDE 5 MG TABLET [Interacting]
     Active Substance: METHYLPHENIDATE HYDROCHLORIDE
     Dosage: 10 MG, BID AFTER A WEEK
     Route: 065
  6. METHYLPHENIDATE HYDROCHLORIDE 5 MG TABLET [Interacting]
     Active Substance: METHYLPHENIDATE HYDROCHLORIDE
     Dosage: 5 MG, BID DUE TO PHYSICAL AGGRESSION DOSE REDUCED
     Route: 065

REACTIONS (4)
  - Drug interaction [Recovered/Resolved]
  - Hallucination, tactile [Recovered/Resolved]
  - Aggression [None]
  - Condition aggravated [None]
